FAERS Safety Report 17382328 (Version 3)
Quarter: 2022Q1

REPORT INFORMATION
  Report Type: Spontaneous
  Country: JP (occurrence: JP)
  Receive Date: 20200206
  Receipt Date: 20220217
  Transmission Date: 20220423
  Serious: Yes (Death, Life-Threatening, Hospitalization, Other)
  Sender: FDA-Public Use
  Company Number: JP-MERCK HEALTHCARE KGAA-9143426

PATIENT
  Age: 73 Year
  Sex: Male
  Weight: 46 kg

DRUGS (9)
  1. ERBITUX [Suspect]
     Active Substance: CETUXIMAB
     Indication: Tongue neoplasm malignant stage unspecified
     Dosage: 400 MG/M2, UNK
     Route: 041
     Dates: start: 20191203, end: 20191203
  2. ERBITUX [Suspect]
     Active Substance: CETUXIMAB
     Dosage: 250 MG/M2, WEEKLY (1/W)
     Route: 041
     Dates: start: 201912, end: 20191230
  3. DEXAMETHASONE SODIUM PHOSPHATE [Concomitant]
     Active Substance: DEXAMETHASONE SODIUM PHOSPHATE
     Indication: Prophylaxis
     Dosage: 6.6 MG, WEEKLY (1/W)
     Route: 041
     Dates: start: 20191203, end: 20191230
  4. POLARAMINE [Concomitant]
     Active Substance: DEXCHLORPHENIRAMINE MALEATE
     Indication: Prophylaxis
     Dosage: 5 MG, WEEKLY (1/W)
     Route: 041
     Dates: start: 20191203, end: 20191230
  5. MINOCYCLINE [Concomitant]
     Active Substance: MINOCYCLINE HYDROCHLORIDE
     Indication: Prophylaxis
     Dosage: 100 MG, DAILY
     Route: 048
     Dates: start: 20191203, end: 20191230
  6. OXYCODONE [Concomitant]
     Active Substance: OXYCODONE
     Indication: Analgesic therapy
     Dosage: 5 MG, DAILY
     Route: 048
     Dates: start: 20191227, end: 20200101
  7. OXYCODONE HYDROCHLORIDE [Concomitant]
     Active Substance: OXYCODONE HYDROCHLORIDE
     Indication: Analgesic therapy
     Dosage: 2.5 MG, DAILY
     Route: 048
     Dates: start: 20200103, end: 20200105
  8. PROCHLORPERAZINE MALEATE [Concomitant]
     Active Substance: PROCHLORPERAZINE MALEATE
     Indication: Adverse drug reaction
     Dosage: 5 MG, DAILY
     Route: 048
     Dates: start: 20191228, end: 20200105
  9. MAGNESIUM OXIDE [Concomitant]
     Active Substance: MAGNESIUM OXIDE
     Indication: Adverse drug reaction
     Dosage: 600 MG, DAILY
     Route: 048
     Dates: start: 20191227, end: 20200105

REACTIONS (7)
  - Gastrointestinal necrosis [Fatal]
  - Sepsis [Fatal]
  - Enterocolitis [Fatal]
  - Shock symptom [Unknown]
  - Intestinal ischaemia [Unknown]
  - Pneumatosis intestinalis [Unknown]
  - Portal venous gas [Unknown]

NARRATIVE: CASE EVENT DATE: 20200101
